FAERS Safety Report 4370283-5 (Version None)
Quarter: 2004Q2

REPORT INFORMATION
  Report Type: 
  Country: None (occurrence: None)
  Receive Date: 20040603
  Receipt Date: 20040405
  Transmission Date: 20050107
  Serious: No
  Sender: FDA-Public Use
  Company Number: US-BRISTOL-MYERS SQUIBB COMPANY-12551529

PATIENT
  Age: 42 Year
  Sex: Male
  Weight: 82 kg

DRUGS (6)
  1. ABILIFY [Suspect]
     Indication: BIPOLAR DISORDER
     Dosage: DOSE INCREASED TO 20 MG/DAY ^A FEW WEEKS AGO AND DISCONTINUED 3-20-04.
     Route: 048
     Dates: start: 20040201, end: 20040320
  2. SERZONE [Suspect]
  3. LEXAPRO [Concomitant]
  4. DEPAKOTE [Concomitant]
  5. GABITRIL [Concomitant]
  6. KLONOPIN [Concomitant]

REACTIONS (1)
  - TREMOR [None]
